FAERS Safety Report 11564266 (Version 5)
Quarter: 2016Q3

REPORT INFORMATION
  Report Type: Spontaneous
  Country: US (occurrence: US)
  Receive Date: 20150928
  Receipt Date: 20160809
  Transmission Date: 20161109
  Serious: No
  Sender: FDA-Public Use
  Company Number: US-GLAXOSMITHKLINE-US2015GSK115477

PATIENT
  Age: 83 Year
  Sex: Male
  Weight: 68 kg

DRUGS (3)
  1. ACITRETIN CAPSULE [Suspect]
     Active Substance: ACITRETIN
     Indication: PSORIASIS
     Dosage: 25 MG, U
     Dates: start: 201601
  2. SORIATANE [Suspect]
     Active Substance: ACITRETIN
     Indication: PSORIASIS
     Dosage: 25 MG, U
     Dates: start: 2010
  3. SORIATANE [Suspect]
     Active Substance: ACITRETIN
     Dosage: 10 MG, U

REACTIONS (6)
  - Exfoliative rash [Recovering/Resolving]
  - Psoriasis [Unknown]
  - Rash pruritic [Recovering/Resolving]
  - Drug ineffective [Unknown]
  - Rash papular [Recovering/Resolving]
  - Product substitution issue [Unknown]

NARRATIVE: CASE EVENT DATE: 201603
